FAERS Safety Report 20957704 (Version 2)
Quarter: 2022Q3

REPORT INFORMATION
  Report Type: Spontaneous
  Country: ZA (occurrence: ZA)
  Receive Date: 20220614
  Receipt Date: 20220824
  Transmission Date: 20221026
  Serious: Yes (Hospitalization)
  Sender: FDA-Public Use
  Company Number: ZA-NOVARTISPH-NVSC2022ZA132969

PATIENT
  Age: 42 Year
  Sex: Male
  Weight: 77 kg

DRUGS (2)
  1. DABRAFENIB [Suspect]
     Active Substance: DABRAFENIB
     Indication: Malignant melanoma stage III
     Dosage: 300 MG (150MG MORNING AND 150 MG EVENINGS), QD
     Route: 065
     Dates: start: 20220331, end: 20220602
  2. TRAMETINIB [Suspect]
     Active Substance: TRAMETINIB
     Indication: Malignant melanoma stage III
     Dosage: 2 MG, QD
     Route: 065
     Dates: start: 20220331, end: 20220602

REACTIONS (3)
  - Neuroleptic malignant syndrome [Unknown]
  - Pyrexia [Recovered/Resolved with Sequelae]
  - Muscle haemorrhage [Unknown]

NARRATIVE: CASE EVENT DATE: 20220428
